FAERS Safety Report 17445725 (Version 1)
Quarter: 2020Q1

REPORT INFORMATION
  Report Type: Spontaneous
  Country: ES (occurrence: ES)
  Receive Date: 20200221
  Receipt Date: 20200221
  Transmission Date: 20200409
  Serious: Yes (Other)
  Sender: FDA-Public Use
  Company Number: NVSC2020ES047476

PATIENT
  Sex: Female

DRUGS (1)
  1. LEUPRORELIN [Suspect]
     Active Substance: LEUPROLIDE ACETATE
     Indication: CUSHING^S SYNDROME
     Dosage: 3.75 MG, Q4W
     Route: 030

REACTIONS (5)
  - Myopathy [Unknown]
  - Diabetes mellitus [Unknown]
  - Drug ineffective for unapproved indication [Unknown]
  - Incorrect route of product administration [Unknown]
  - Hypertension [Unknown]
